FAERS Safety Report 7512269-5 (Version None)
Quarter: 2011Q2

REPORT INFORMATION
  Report Type: 
  Country: None (occurrence: None)
  Receive Date: 20110531
  Receipt Date: 20110518
  Transmission Date: 20111010
  Serious: Yes (Hospitalization)
  Sender: FDA-Public Use
  Company Number: US-ACTELION-A-US2011-46536

PATIENT

DRUGS (1)
  1. TRACLEER [Suspect]
     Indication: PULMONARY ARTERIAL HYPERTENSION
     Dosage: UNK
     Route: 048
     Dates: start: 20081029

REACTIONS (6)
  - STAPHYLOCOCCAL INFECTION [None]
  - PNEUMONIA [None]
  - CARDIAC OPERATION [None]
  - PYREXIA [None]
  - PERICARDIAL EFFUSION [None]
  - PULMONARY ARTERIAL HYPERTENSION [None]
